FAERS Safety Report 25409506 (Version 1)
Quarter: 2025Q2

REPORT INFORMATION
  Report Type: Spontaneous
  Country: FR (occurrence: FR)
  Receive Date: 20250607
  Receipt Date: 20250607
  Transmission Date: 20250716
  Serious: Yes (Hospitalization, Other)
  Sender: Long Grove Pharmaceuticals
  Company Number: FR-Long Grove-000116

PATIENT
  Age: 62 Year
  Sex: Female

DRUGS (3)
  1. SODIUM BICARBONATE [Suspect]
     Active Substance: SODIUM BICARBONATE
     Indication: Metabolic acidosis
     Route: 042
  2. LEVOTHYROXINE [Concomitant]
     Active Substance: LEVOTHYROXINE
     Indication: Hypothyroidism
  3. RILUZOLE [Concomitant]
     Active Substance: RILUZOLE

REACTIONS (1)
  - Ketoacidosis [Recovered/Resolved]
